FAERS Safety Report 11071139 (Version 2)
Quarter: 2015Q2

REPORT INFORMATION
  Report Type: Spontaneous
  Country: DE (occurrence: DE)
  Receive Date: 20150428
  Receipt Date: 20150506
  Transmission Date: 20150821
  Serious: Yes (Hospitalization, Other)
  Sender: FDA-Public Use
  Company Number: DE-GLAXOSMITHKLINE-DE2015GSK053878

PATIENT
  Age: 41 Year
  Sex: Male
  Weight: 94 kg

DRUGS (3)
  1. L -THYROXINE [Concomitant]
     Dosage: 75 UNK, QD
     Dates: start: 2009
  2. NORVASC [Concomitant]
     Active Substance: AMLODIPINE BESYLATE
     Indication: HYPERTENSION
     Dosage: 5 MG, QD
     Dates: start: 2012, end: 2015
  3. VOTRIENT [Suspect]
     Active Substance: PAZOPANIB HYDROCHLORIDE
     Indication: RENAL CELL CARCINOMA
     Dosage: 800 MG, QD
     Dates: start: 201412, end: 201503

REACTIONS (4)
  - Interstitial lung disease [Recovering/Resolving]
  - Pneumocystis jirovecii pneumonia [Unknown]
  - Interstitial lung disease [Unknown]
  - Lymphangiosis carcinomatosa [Recovering/Resolving]

NARRATIVE: CASE EVENT DATE: 201503
